FAERS Safety Report 21728345 (Version 2)
Quarter: 2022Q4

REPORT INFORMATION
  Report Type: Spontaneous
  Country: US (occurrence: US)
  Receive Date: 20221214
  Receipt Date: 20221219
  Transmission Date: 20230112
  Serious: Yes (Other)
  Sender: FDA-Public Use
  Company Number: US-PFIZER INC-202201368800

PATIENT
  Age: 77 Year
  Sex: Female
  Weight: 56.7 kg

DRUGS (2)
  1. PAXLOVID [Suspect]
     Active Substance: NIRMATRELVIR\RITONAVIR
     Indication: COVID-19 treatment
     Dosage: UNK (300MG-100MG DOSE PACK)
     Dates: start: 20221206, end: 20221212
  2. METOPROLOL TARTRATE [Concomitant]
     Active Substance: METOPROLOL TARTRATE
     Indication: Blood pressure measurement
     Dosage: 50 MG

REACTIONS (3)
  - Blood pressure increased [Recovering/Resolving]
  - Visual impairment [Recovered/Resolved]
  - Inappropriate schedule of product administration [Unknown]

NARRATIVE: CASE EVENT DATE: 20221210
